APPROVED DRUG PRODUCT: SULFAIR 10
Active Ingredient: SULFACETAMIDE SODIUM
Strength: 10%
Dosage Form/Route: SOLUTION/DROPS;OPHTHALMIC
Application: A087949 | Product #001
Applicant: PHARMAFAIR INC
Approved: Dec 13, 1982 | RLD: No | RS: No | Type: DISCN